FAERS Safety Report 14277523 (Version 1)
Quarter: 2017Q4

REPORT INFORMATION
  Report Type: Spontaneous
  Country: US (occurrence: US)
  Receive Date: 20171212
  Receipt Date: 20171212
  Transmission Date: 20180321
  Serious: Yes (Hospitalization)
  Sender: FDA-Public Use
  Company Number: US-APOTEX-2017AP022196

PATIENT
  Age: 10 Year
  Sex: Female

DRUGS (12)
  1. CITALOPRAM [Suspect]
     Active Substance: CITALOPRAM HYDROBROMIDE
     Dosage: 10 MG, DAILY
     Route: 065
  2. CLONAZEPAM TABLETS USP [Suspect]
     Active Substance: CLONAZEPAM
     Indication: OBSESSIVE-COMPULSIVE DISORDER
     Dosage: 0.5 MG, TID
     Route: 065
  3. RISPERIDONE. [Suspect]
     Active Substance: RISPERIDONE
     Indication: OBSESSIVE-COMPULSIVE DISORDER
     Dosage: 0.25 MG, BID
     Route: 065
  4. HYDROXYZINE [Suspect]
     Active Substance: HYDROXYZINE HYDROCHLORIDE
     Indication: OBSESSIVE-COMPULSIVE DISORDER
     Dosage: 5 MG, BID
     Route: 065
  5. LORAZEPAM. [Suspect]
     Active Substance: LORAZEPAM
     Indication: AGITATION
     Dosage: 0.25 MG, TID
     Route: 065
  6. CITALOPRAM [Suspect]
     Active Substance: CITALOPRAM HYDROBROMIDE
     Dosage: 15 MG, DAILY
     Route: 065
  7. CLOMIPRAMINE [Suspect]
     Active Substance: CLOMIPRAMINE
     Indication: OBSESSIVE-COMPULSIVE DISORDER
     Dosage: 25 MG, Q.H.S.
     Route: 065
  8. LORAZEPAM. [Suspect]
     Active Substance: LORAZEPAM
     Indication: OBSESSIVE-COMPULSIVE DISORDER
     Dosage: 0.5 MG, TID
     Route: 065
  9. SERTRALINE HYDROCHLORIDE. [Suspect]
     Active Substance: SERTRALINE HYDROCHLORIDE
     Indication: COMPULSIVE HANDWASHING
     Dosage: 25 MG, QD
     Route: 065
  10. CITALOPRAM [Suspect]
     Active Substance: CITALOPRAM HYDROBROMIDE
     Dosage: 30 MG, DAILY
     Route: 065
  11. CITALOPRAM [Suspect]
     Active Substance: CITALOPRAM HYDROBROMIDE
     Indication: OBSESSIVE-COMPULSIVE DISORDER
     Dosage: 5 MG, DAILY
     Route: 065
  12. HYDROXYZINE [Suspect]
     Active Substance: HYDROXYZINE HYDROCHLORIDE
     Dosage: 10 MG, TID
     Route: 065

REACTIONS (8)
  - Anxiety [Recovering/Resolving]
  - Agitation [Recovering/Resolving]
  - Drug ineffective [Unknown]
  - Activation syndrome [Recovering/Resolving]
  - Constipation [Recovered/Resolved]
  - Alopecia [Unknown]
  - Drug intolerance [Unknown]
  - Irritability [Recovering/Resolving]
